FAERS Safety Report 7540572-1 (Version None)
Quarter: 2011Q2

REPORT INFORMATION
  Report Type: 
  Country: None (occurrence: None)
  Receive Date: 20110610
  Receipt Date: 20110601
  Transmission Date: 20111010
  Serious: Yes (Other)
  Sender: FDA-Public Use
  Company Number: B0725023A

PATIENT
  Age: 66 Year
  Sex: Male

DRUGS (1)
  1. PROMACTA [Suspect]
     Indication: MYELOFIBROSIS
     Route: 065
     Dates: start: 20110518

REACTIONS (4)
  - BONE PAIN [None]
  - BLOOD BILIRUBIN INCREASED [None]
  - NIGHT SWEATS [None]
  - OFF LABEL USE [None]
